FAERS Safety Report 11283027 (Version 1)
Quarter: 2015Q3

REPORT INFORMATION
  Report Type: Spontaneous
  Country: US (occurrence: None)
  Receive Date: 20150717
  Receipt Date: 20150717
  Transmission Date: 20151125
  Serious: No
  Sender: FDA-Public Use
  Company Number: None

PATIENT
  Age: 62 Year
  Sex: Female

DRUGS (1)
  1. BOSULIF [Suspect]
     Active Substance: BOSUTINIB MONOHYDRATE
     Dosage: 1 QD  W/FOOD
     Route: 048
     Dates: start: 20150216

REACTIONS (2)
  - Pulmonary oedema [None]
  - Diarrhoea [None]

NARRATIVE: CASE EVENT DATE: 20150716
